FAERS Safety Report 4265766-2 (Version None)
Quarter: 2004Q1

REPORT INFORMATION
  Report Type: 
  Country: None (occurrence: None)
  Receive Date: 20040106
  Receipt Date: 20031223
  Transmission Date: 20041129
  Serious: Yes (Hospitalization)
  Sender: FDA-Public Use
  Company Number: US-JNJFOC-20031204953

PATIENT
  Sex: Female

DRUGS (1)
  1. REMICADE [Suspect]
     Indication: RHEUMATOID ARTHRITIS
     Dosage: 5 MG/KG, INTRAVENOUS
     Route: 042
     Dates: start: 20030101

REACTIONS (5)
  - ANTINUCLEAR ANTIBODY POSITIVE [None]
  - GAMMOPATHY [None]
  - LEUKOPENIA [None]
  - LOCALISED INFECTION [None]
  - PERICARDITIS [None]
